FAERS Safety Report 4960840-7 (Version None)
Quarter: 2006Q2

REPORT INFORMATION
  Report Type: 
  Country: None (occurrence: None)
  Receive Date: 20060403
  Receipt Date: 20060328
  Transmission Date: 20061013
  Serious: Yes (Other)
  Sender: FDA-Public Use
  Company Number: US-KINGPHARMUSA00001-K200600388

PATIENT
  Age: 30 Year
  Sex: Female
  Weight: 68 kg

DRUGS (3)
  1. BICILLIN L-A [Suspect]
     Indication: PHARYNGITIS STREPTOCOCCAL
     Dosage: UNK, SINGLE
     Route: 030
     Dates: start: 20060304, end: 20060304
  2. MULTIVITAMIN/WITH GREEN TEA [Concomitant]
     Indication: VITAMIN SUPPLEMENTATION
     Route: 048
  3. CALCIUM GLUCONATE [Concomitant]
     Indication: MINERAL SUPPLEMENTATION
     Route: 048

REACTIONS (3)
  - BLOOD GLUCOSE INCREASED [None]
  - DIABETES MELLITUS [None]
  - VISION BLURRED [None]
